FAERS Safety Report 25967272 (Version 1)
Quarter: 2025Q4

REPORT INFORMATION
  Report Type: Spontaneous
  Country: JP (occurrence: JP)
  Receive Date: 20251028
  Receipt Date: 20251028
  Transmission Date: 20260118
  Serious: Yes (Disabling, Other)
  Sender: MSN LABORATORIES PRIVATE LIMITED
  Company Number: JP-MLMSERVICE-20251001-PI663542-00106-1

PATIENT

DRUGS (1)
  1. CLOPIDOGREL [Suspect]
     Active Substance: CLOPIDOGREL BISULFATE
     Indication: Antiplatelet therapy
     Dosage: 50 MG PER DAY
     Route: 065

REACTIONS (4)
  - Muscle injury [Recovered/Resolved]
  - Haematoma muscle [Recovered/Resolved]
  - Anaemia [Unknown]
  - Muscle haemorrhage [Unknown]
